FAERS Safety Report 7103088-2 (Version None)
Quarter: 2010Q4

REPORT INFORMATION
  Report Type: 
  Country: None (occurrence: None)
  Receive Date: 20101115
  Receipt Date: 20100924
  Transmission Date: 20110411
  Serious: Yes (Hospitalization, Disabling, Other)
  Sender: FDA-Public Use
  Company Number: US-BAYER-201017165NA

PATIENT
  Age: 38 Year
  Sex: Female
  Weight: 53 kg

DRUGS (7)
  1. OCELLA [Suspect]
     Indication: PRODUCT USED FOR UNKNOWN INDICATION
     Route: 048
     Dates: start: 20090201, end: 20090401
  2. YAZ [Suspect]
     Indication: PRODUCT USED FOR UNKNOWN INDICATION
     Route: 048
     Dates: start: 20090201, end: 20090401
  3. YASMIN [Suspect]
     Indication: CONTRACEPTION
     Route: 048
     Dates: start: 20090201, end: 20090401
  4. TRETINOIN [Concomitant]
     Dosage: TRETINOIN CRE
     Dates: start: 20080825
  5. TEGRETOL-XR [Concomitant]
     Dates: start: 20090425
  6. SIMVASTATIN [Concomitant]
     Dates: start: 20090428, end: 20090812
  7. ASPIRIN [Concomitant]

REACTIONS (15)
  - AMNESIA [None]
  - ANXIETY [None]
  - BLOOD PRESSURE INCREASED [None]
  - CEREBROVASCULAR ACCIDENT [None]
  - CONFUSIONAL STATE [None]
  - DYSPHAGIA [None]
  - HEADACHE [None]
  - MUSCLE SPASMS [None]
  - NIGHTMARE [None]
  - PANIC ATTACK [None]
  - READING DISORDER [None]
  - SIMPLE PARTIAL SEIZURES [None]
  - SPEECH DISORDER [None]
  - VERTIGO [None]
  - VISUAL IMPAIRMENT [None]
